FAERS Safety Report 24598965 (Version 3)
Quarter: 2025Q3

REPORT INFORMATION
  Report Type: Spontaneous
  Country: JP (occurrence: JP)
  Receive Date: 20241110
  Receipt Date: 20250810
  Transmission Date: 20251020
  Serious: Yes (Hospitalization, Other)
  Sender: ALEXION PHARMACEUTICALS
  Company Number: JP-ASTRAZENECA-240118786_013120_P_1

PATIENT
  Age: 67 Year
  Sex: Male

DRUGS (2)
  1. DURVALUMAB [Suspect]
     Active Substance: DURVALUMAB
     Indication: Non-small cell lung cancer
     Dosage: 1500 MILLIGRAM, Q3W
     Dates: start: 20240628, end: 20240919
  2. TREMELIMUMAB [Suspect]
     Active Substance: TREMELIMUMAB
     Indication: Non-small cell lung cancer
     Dosage: 75 MILLIGRAM, Q3W
     Dates: start: 20240628, end: 20240919

REACTIONS (7)
  - Interstitial lung disease [Recovered/Resolved]
  - Colitis [Recovered/Resolved]
  - Adrenal insufficiency [Recovered/Resolved]
  - Gastric ulcer [Recovered/Resolved]
  - Renal failure [Recovering/Resolving]
  - Weight decreased [Unknown]
  - Rash [Recovered/Resolved]
